FAERS Safety Report 6575916-0 (Version None)
Quarter: 2010Q1

REPORT INFORMATION
  Report Type: 
  Country: None (occurrence: None)
  Receive Date: 20100209
  Receipt Date: 20100129
  Transmission Date: 20100710
  Serious: Yes (Hospitalization, Other)
  Sender: FDA-Public Use
  Company Number: US-B.I. PHARMACEUTICALS,INC./RIDGEFIELD-2010-DE-00527GD

PATIENT
  Age: 66 Year
  Sex: Female

DRUGS (11)
  1. CLONIDINE [Suspect]
     Indication: HYPERTENSION
     Dosage: 0.6 MG
     Route: 048
  2. DULOXETINE [Suspect]
     Indication: DEPRESSION
     Dosage: 60 MG
     Route: 048
  3. ATORVASTATIN CALCIUM [Suspect]
     Dosage: 80 MG
  4. MEMANTINE HCL [Concomitant]
     Indication: DEMENTIA ALZHEIMER'S TYPE
     Dosage: 20 MG
     Route: 048
  5. DONEPEZIL HYDROCHLORIDE [Concomitant]
     Indication: DEMENTIA ALZHEIMER'S TYPE
     Dosage: 10 MG
     Route: 048
  6. METOPROLOL TARTRATE [Concomitant]
     Indication: HYPERTENSION
     Dosage: 100 MG
     Route: 048
  7. AMLODIPINE [Concomitant]
     Indication: HYPERTENSION
     Dosage: 10 MG
     Route: 048
  8. ASPIRIN [Concomitant]
     Dosage: 325 MG
  9. CLOPIDOGREL [Concomitant]
     Dosage: 75 MG
     Route: 048
  10. FENTANYL-100 [Concomitant]
     Indication: ANAESTHESIA PROCEDURE
     Dosage: 100 MCG
     Route: 042
  11. MIDAZOLAM HCL [Concomitant]
     Indication: ANAESTHESIA PROCEDURE
     Dosage: 6 MG
     Route: 042

REACTIONS (3)
  - BLOOD CREATINE PHOSPHOKINASE INCREASED [None]
  - DRUG INTERACTION [None]
  - PYREXIA [None]
